FAERS Safety Report 25382975 (Version 1)
Quarter: 2025Q2

REPORT INFORMATION
  Report Type: Spontaneous
  Country: US (occurrence: US)
  Receive Date: 20250602
  Receipt Date: 20250602
  Transmission Date: 20250716
  Serious: Yes (Other)
  Sender: AUROBINDO
  Company Number: US-AUROBINDO-AUR-APL-2022-014406

PATIENT
  Age: 39 Year
  Sex: Male

DRUGS (1)
  1. MILRINONE LACTATE [Suspect]
     Active Substance: MILRINONE LACTATE
     Indication: Cardiogenic shock
     Route: 065

REACTIONS (1)
  - Drug ineffective [Unknown]
